FAERS Safety Report 7699167-1 (Version None)
Quarter: 2011Q3

REPORT INFORMATION
  Report Type: 
  Country: None (occurrence: None)
  Receive Date: 20110819
  Receipt Date: 20110316
  Transmission Date: 20111222
  Serious: No
  Sender: FDA-Public Use
  Company Number: US-BAYER-2011-002671

PATIENT
  Age: 64 Year
  Sex: Female

DRUGS (3)
  1. INTERFERON BETA-1B [Suspect]
     Dosage: 8 MIU, QOD
     Route: 058
  2. INTERFERON BETA-1B [Suspect]
     Indication: MULTIPLE SCLEROSIS
     Dosage: 8 MIU, QOD
     Route: 058
     Dates: start: 20100506
  3. INTERFERON BETA-1B [Suspect]
     Dosage: 8 MIU, QOD
     Route: 058

REACTIONS (7)
  - INJECTION SITE PAIN [None]
  - POLLAKIURIA [None]
  - INJECTION SITE HAEMORRHAGE [None]
  - DEPRESSION [None]
  - TREMOR [None]
  - INJECTION SITE RASH [None]
  - INJECTION SITE SWELLING [None]
